FAERS Safety Report 13627838 (Version 2)
Quarter: 2017Q3

REPORT INFORMATION
  Report Type: Spontaneous
  Country: US (occurrence: US)
  Receive Date: 20170607
  Receipt Date: 20170712
  Transmission Date: 20171127
  Serious: Yes (Hospitalization)
  Sender: FDA-Public Use
  Company Number: US-JNJFOC-20170603868

PATIENT
  Age: 58 Year
  Sex: Male

DRUGS (7)
  1. DULOXETINE. [Concomitant]
     Active Substance: DULOXETINE
     Indication: CRANIAL NERVE INJURY
     Route: 065
     Dates: start: 2016
  2. CLONAZEPAM. [Concomitant]
     Active Substance: CLONAZEPAM
     Indication: CRANIAL NERVE INJURY
     Route: 065
     Dates: start: 2014
  3. LANTUS [Concomitant]
     Active Substance: INSULIN GLARGINE
     Indication: PRODUCT USED FOR UNKNOWN INDICATION
     Dosage: DOSE: 100 UNITS
     Route: 065
     Dates: start: 2008
  4. INVOKANA [Suspect]
     Active Substance: CANAGLIFLOZIN
     Indication: TYPE 2 DIABETES MELLITUS
     Dosage: 100MG, 300MG
     Route: 048
     Dates: start: 20130624, end: 20160114
  5. LEVEMIR [Concomitant]
     Active Substance: INSULIN DETEMIR
     Indication: DIABETES MELLITUS
     Dosage: DOSE: 15 + UNITS
     Route: 065
     Dates: start: 2012
  6. HUMALOG [Concomitant]
     Active Substance: INSULIN LISPRO
     Indication: PRODUCT USED FOR UNKNOWN INDICATION
     Dosage: 100 UNITS
     Route: 065
     Dates: start: 2008
  7. NOVOLOG [Concomitant]
     Active Substance: INSULIN ASPART
     Indication: DIABETES MELLITUS
     Dosage: DOSE: 40 UNITS????15+ EXTRA IF BLOOD SUGAR IS??HIGH TWICE DAILY
     Route: 065
     Dates: start: 2012

REACTIONS (1)
  - Diabetic ketoacidosis [Recovering/Resolving]

NARRATIVE: CASE EVENT DATE: 201601
